FAERS Safety Report 20256128 (Version 1)
Quarter: 2021Q4

REPORT INFORMATION
  Report Type: Spontaneous
  Country: US (occurrence: None)
  Receive Date: 20211229
  Receipt Date: 20211229
  Transmission Date: 20220303
  Serious: Yes (Life-Threatening, Hospitalization)
  Sender: FDA-Public Use
  Company Number: None

PATIENT
  Age: 74 Year
  Sex: Female

DRUGS (1)
  1. AFINITOR [Suspect]
     Active Substance: EVEROLIMUS
     Dosage: 10MG DAILY ORAL?
     Route: 048
     Dates: start: 202111

REACTIONS (1)
  - Aspiration pleural cavity [None]

NARRATIVE: CASE EVENT DATE: 20211227
